FAERS Safety Report 6608580-2 (Version None)
Quarter: 2010Q1

REPORT INFORMATION
  Report Type: 
  Country: None (occurrence: None)
  Receive Date: 20100226
  Receipt Date: 20100226
  Transmission Date: 20100710
  Serious: Yes (Hospitalization)
  Sender: FDA-Public Use
  Company Number: None

PATIENT
  Age: 69 Year
  Sex: Female
  Weight: 55.7924 kg

DRUGS (1)
  1. OMNARIS [Suspect]
     Indication: SEASONAL ALLERGY
     Dosage: 2 SPRAYSEACH NOSTRIL 1X PER DAY, BEDTIM NASAL
     Route: 045
     Dates: start: 20100215, end: 20100220

REACTIONS (3)
  - FACE INJURY [None]
  - PRESYNCOPE [None]
  - SYNCOPE [None]
